FAERS Safety Report 25216517 (Version 1)
Quarter: 2025Q2

REPORT INFORMATION
  Report Type: Spontaneous
  Country: US (occurrence: US)
  Receive Date: 20250419
  Receipt Date: 20250419
  Transmission Date: 20250716
  Serious: No
  Sender: ROCHE
  Company Number: US-ROCHE-10000259049

PATIENT
  Age: 72 Year
  Sex: Female
  Weight: 85.73 kg

DRUGS (19)
  1. ACTEMRA [Suspect]
     Active Substance: TOCILIZUMAB
     Indication: Rheumatoid arthritis
     Dosage: THE PATIENT^S LAST DOSE WAS ON 27-MAR-2025.
     Route: 065
     Dates: start: 202501
  2. NOVOLOG FLEXPEN 70/30 [Concomitant]
     Indication: Diabetes mellitus
     Route: 065
  3. LASIX [Concomitant]
     Active Substance: FUROSEMIDE
     Indication: Swelling
     Route: 048
  4. UMECLIDINIUM BROMIDE\VILANTEROL TRIFENATATE [Concomitant]
     Active Substance: UMECLIDINIUM BROMIDE\VILANTEROL TRIFENATATE
     Indication: Chronic obstructive pulmonary disease
     Dosage: DOSE IS 62.6-25 MCG INHALER.
     Route: 055
  5. ALBUTEROL [Concomitant]
     Active Substance: ALBUTEROL
     Indication: Wheezing
     Dosage: (2) 90 MCG PUFFS INHALER AS NEEDED
     Route: 055
  6. ASPIRIN [Concomitant]
     Active Substance: ASPIRIN
     Route: 048
  7. GABAPENTIN [Concomitant]
     Active Substance: GABAPENTIN
     Indication: Restless legs syndrome
     Dosage: TAKES (2) 600 MG TABS AT NIGHT
     Route: 048
  8. SIMPONI ARIA [Concomitant]
     Active Substance: GOLIMUMAB
     Indication: Rheumatoid arthritis
     Dosage: FOR 4 DOSES
     Route: 042
     Dates: start: 2025
  9. SODIUM CHLORIDE [Concomitant]
     Active Substance: SODIUM CHLORIDE
     Dosage: FOR 4 DOSES
     Route: 042
     Dates: start: 2025
  10. LISINOPRIL [Concomitant]
     Active Substance: LISINOPRIL
     Indication: Hypertension
     Route: 048
  11. MELATONIN [Concomitant]
     Active Substance: MELATONIN
     Dosage: GUMMY
     Route: 048
  12. MOBIC [Concomitant]
     Active Substance: MELOXICAM
     Indication: Pain
     Route: 048
  13. METOPROLOL [Concomitant]
     Active Substance: METOPROLOL
     Indication: Hypertension
     Dosage: TAKES 0.5 OF A 25 MG TABLET
     Route: 048
  14. NITROSTAT [Concomitant]
     Active Substance: NITROGLYCERIN
     Indication: Angina pectoris
     Route: 048
  15. POTASSIUM GLUCONATE [Concomitant]
     Active Substance: POTASSIUM GLUCONATE
     Route: 048
  16. TRAMADOL [Concomitant]
     Active Substance: TRAMADOL
     Indication: Pain
     Route: 048
  17. VRAYLAR [Concomitant]
     Active Substance: CARIPRAZINE
     Route: 048
  18. CLARITIN [Concomitant]
     Active Substance: LORATADINE
     Route: 048
  19. MECLIZINE HYDROCHLORIDE [Concomitant]
     Active Substance: MECLIZINE HYDROCHLORIDE
     Route: 048

REACTIONS (3)
  - Product dose omission issue [Unknown]
  - Product complaint [Unknown]
  - No adverse event [Unknown]

NARRATIVE: CASE EVENT DATE: 20250410
